FAERS Safety Report 7558163-5 (Version None)
Quarter: 2011Q2

REPORT INFORMATION
  Report Type: 
  Country: None (occurrence: None)
  Receive Date: 20110620
  Receipt Date: 20110615
  Transmission Date: 20111010
  Serious: Yes (Other)
  Sender: FDA-Public Use
  Company Number: DE-GILEAD-2011-0040729

PATIENT
  Age: 44 Year
  Sex: Male

DRUGS (1)
  1. EMTRIVA [Suspect]
     Indication: HIV INFECTION
     Dates: start: 20100901

REACTIONS (2)
  - BLOOD CREATININE INCREASED [None]
  - RENAL FAILURE ACUTE [None]
